FAERS Safety Report 5157497-1 (Version None)
Quarter: 2006Q4

REPORT INFORMATION
  Report Type: 
  Country: None (occurrence: None)
  Receive Date: 20061127
  Receipt Date: 20060127
  Transmission Date: 20070319
  Serious: Yes (Life-Threatening, Hospitalization)
  Sender: FDA-Public Use
  Company Number: JP-JPN-A200600376

PATIENT
  Age: 14 Year
  Sex: Female

DRUGS (2)
  1. ALKERAN [Suspect]
     Route: 042
     Dates: start: 20040101, end: 20040101
  2. THIOTEPA [Concomitant]
     Route: 065
     Dates: start: 20040101, end: 20040101

REACTIONS (4)
  - HERPES ZOSTER [None]
  - MICROANGIOPATHIC HAEMOLYTIC ANAEMIA [None]
  - PYREXIA [None]
  - SEPSIS [None]
